FAERS Safety Report 7075600-3 (Version None)
Quarter: 2010Q4

REPORT INFORMATION
  Report Type: 
  Country: None (occurrence: None)
  Receive Date: 20101030
  Receipt Date: 20101019
  Transmission Date: 20110411
  Serious: No
  Sender: FDA-Public Use
  Company Number: US-WYE-H18259210

PATIENT
  Sex: Female
  Weight: 77.18 kg

DRUGS (6)
  1. PRISTIQ [Suspect]
     Indication: DEPRESSION
     Dates: start: 20100101
  2. OPANA ER [Concomitant]
  3. SYNTHROID [Concomitant]
  4. KEPPRA [Concomitant]
  5. ENBREL [Concomitant]
  6. PLAQUENIL [Concomitant]

REACTIONS (3)
  - ANXIETY [None]
  - FATIGUE [None]
  - HYPERSOMNIA [None]
